FAERS Safety Report 7436081 (Version 2)
Quarter: 2014Q1

REPORT INFORMATION
  Report Type: Spontaneous
  Country: US (occurrence: US)
  Receive Date: 20100625
  Receipt Date: 20140122
  Transmission Date: 20141002
  Serious: No
  Sender: FDA-Public Use
  Company Number: US-JNJFOC-20100605224

PATIENT
  Age: 56 Year
  Sex: Female
  Weight: 74.84 kg

DRUGS (7)
  1. SANDOZ FENTANYL TRANSDERMAL SYSTEM [Suspect]
     Indication: PAIN
     Route: 062
     Dates: start: 2006, end: 2006
  2. SANDOZ FENTANYL TRANSDERMAL SYSTEM [Suspect]
     Indication: PAIN
     Dosage: NDC : 0781-7242-55
     Route: 062
     Dates: start: 201005
  3. MYLAN FENTANYL PATCH [Suspect]
     Indication: PAIN
     Route: 062
     Dates: start: 2006, end: 201005
  4. SIMVASTATIN [Concomitant]
     Indication: BLOOD CHOLESTEROL
     Route: 048
     Dates: start: 201005
  5. LIPITOR [Concomitant]
     Indication: BLOOD CHOLESTEROL
     Route: 048
     Dates: end: 201005
  6. CELEXA [Concomitant]
     Indication: DEPRESSION
     Route: 048
  7. TRAZODONE [Concomitant]
     Indication: SLEEP DISORDER
     Route: 048

REACTIONS (5)
  - Application site reaction [Not Recovered/Not Resolved]
  - Drug tolerance increased [Recovered/Resolved]
  - Wrong technique in drug usage process [Not Recovered/Not Resolved]
  - Therapeutic response decreased [Not Recovered/Not Resolved]
  - Product quality issue [Unknown]
